FAERS Safety Report 18576219 (Version 1)
Quarter: 2020Q4

REPORT INFORMATION
  Report Type: Spontaneous
  Country: NZ (occurrence: NZ)
  Receive Date: 20201203
  Receipt Date: 20201203
  Transmission Date: 20210114
  Serious: Yes (Other)
  Sender: FDA-Public Use
  Company Number: NZ-ASTRAZENECA-2020SF56843

PATIENT
  Sex: Male

DRUGS (1)
  1. GEFITINIB. [Suspect]
     Active Substance: GEFITINIB
     Indication: LUNG CANCER METASTATIC
     Route: 048

REACTIONS (6)
  - Metastases to central nervous system [Unknown]
  - Pathological fracture [Unknown]
  - Mobility decreased [Not Recovered/Not Resolved]
  - Metastases to meninges [Unknown]
  - Malignant neoplasm progression [Unknown]
  - Metastases to bone [Unknown]
